FAERS Safety Report 10552598 (Version 4)
Quarter: 2015Q3

REPORT INFORMATION
  Report Type: Report from Study
  Country: US (occurrence: US)
  Receive Date: 20141029
  Receipt Date: 20150729
  Transmission Date: 20151125
  Serious: Yes (Hospitalization, Other)
  Sender: FDA-Public Use
  Company Number: US-SA-2013SA104230

PATIENT
  Age: 38 Year
  Sex: Female

DRUGS (3)
  1. MYRBETRIQ [Concomitant]
     Active Substance: MIRABEGRON
  2. AUBAGIO [Suspect]
     Active Substance: TERIFLUNOMIDE
     Indication: MULTIPLE SCLEROSIS
     Route: 048
     Dates: start: 20131005
  3. RESTASIS [Concomitant]
     Active Substance: CYCLOSPORINE

REACTIONS (37)
  - Tooth extraction [Unknown]
  - Fall [Unknown]
  - Vomiting [Unknown]
  - Dental caries [Unknown]
  - Candida infection [Unknown]
  - Nuclear magnetic resonance imaging abnormal [Unknown]
  - Shoulder operation [Unknown]
  - Dysuria [Unknown]
  - Bladder pain [Unknown]
  - Asthenia [Unknown]
  - Oropharyngeal pain [Unknown]
  - Decreased appetite [Not Recovered/Not Resolved]
  - Visual impairment [Recovering/Resolving]
  - Erythema [Recovered/Resolved]
  - Multiple sclerosis relapse [Unknown]
  - Sinus congestion [Unknown]
  - Catheter management [Unknown]
  - Protein total decreased [Not Recovered/Not Resolved]
  - Sensory disturbance [Unknown]
  - Constipation [Recovered/Resolved]
  - Nausea [Not Recovered/Not Resolved]
  - Pain in extremity [Unknown]
  - Alopecia [Unknown]
  - Paraesthesia [Recovered/Resolved]
  - Bladder spasm [Unknown]
  - Dysphagia [Unknown]
  - Hypoaesthesia [Recovered/Resolved]
  - Cyst [Unknown]
  - Pain [Unknown]
  - Pruritus [Unknown]
  - Shoulder operation [Unknown]
  - Urine flow decreased [Unknown]
  - Fungal infection [Unknown]
  - Swelling [Unknown]
  - Temperature intolerance [Unknown]
  - Dysphonia [Unknown]
  - Carpal tunnel syndrome [Unknown]

NARRATIVE: CASE EVENT DATE: 201405
